FAERS Safety Report 10214006 (Version 1)
Quarter: 2014Q2

REPORT INFORMATION
  Report Type: Spontaneous
  Country: DE (occurrence: DE)
  Receive Date: 20140603
  Receipt Date: 20140603
  Transmission Date: 20141212
  Serious: Yes (Other)
  Sender: FDA-Public Use
  Company Number: DE-ACTAVIS-2014-11617

PATIENT
  Sex: 0

DRUGS (2)
  1. DICLOFENAC (UNKNOWN) [Suspect]
     Indication: PRODUCT USED FOR UNKNOWN INDICATION
     Dosage: UNK
     Route: 065
  2. TENOFOVIR [Interacting]
     Indication: PRODUCT USED FOR UNKNOWN INDICATION
     Dosage: UNK
     Route: 065

REACTIONS (5)
  - Renal failure acute [Unknown]
  - Glycosuria [Recovered/Resolved]
  - Hypophosphataemia [Unknown]
  - Renal tubular disorder [Unknown]
  - Drug interaction [Unknown]
